FAERS Safety Report 6430987-7 (Version None)
Quarter: 2009Q4

REPORT INFORMATION
  Report Type: 
  Country: None (occurrence: None)
  Receive Date: 20091106
  Receipt Date: 20091019
  Transmission Date: 20100525
  Serious: Yes (Other)
  Sender: FDA-Public Use
  Company Number: GB-AVENTIS-200922138GDDC

PATIENT

DRUGS (3)
  1. GLIBENCLAMIDE [Suspect]
  2. METFORMIN [Suspect]
     Route: 048
  3. PLACEBO [Suspect]

REACTIONS (1)
  - LUNG DISORDER [None]
